FAERS Safety Report 11366037 (Version 8)
Quarter: 2017Q4

REPORT INFORMATION
  Report Type: Spontaneous
  Country: US (occurrence: US)
  Receive Date: 20150811
  Receipt Date: 20171117
  Transmission Date: 20180320
  Serious: Yes (Other)
  Sender: FDA-Public Use
  Company Number: US-BAYER-2015-391659

PATIENT
  Age: 50 Year
  Sex: Female
  Weight: 59.63 kg

DRUGS (44)
  1. CIPRO [Suspect]
     Active Substance: CIPROFLOXACIN HYDROCHLORIDE
     Dosage: 500 MG, UNK
     Dates: start: 20060101, end: 20161231
  2. LEVAQUIN [Concomitant]
     Active Substance: LEVOFLOXACIN
     Dosage: 500 MG, UNK
     Dates: start: 20050627
  3. PAXIL [Concomitant]
     Active Substance: PAROXETINE HYDROCHLORIDE
     Dosage: UNK
  4. ZYRTEC [Concomitant]
     Active Substance: CETIRIZINE HYDROCHLORIDE
     Dosage: UNK
  5. TRAMADOL. [Concomitant]
     Active Substance: TRAMADOL
     Dosage: UNK
  6. CIPRO [Suspect]
     Active Substance: CIPROFLOXACIN HYDROCHLORIDE
     Dosage: 500 MG, QD
     Dates: start: 20091001
  7. LEVAQUIN [Concomitant]
     Active Substance: LEVOFLOXACIN
     Dosage: 500 MG, UNK
     Dates: start: 20110119
  8. LEVAQUIN [Concomitant]
     Active Substance: LEVOFLOXACIN
     Dosage: 500 MG, QD
     Route: 048
  9. GABAPENTIN. [Concomitant]
     Active Substance: GABAPENTIN
     Dosage: UNK
  10. FAMOTIDINE. [Concomitant]
     Active Substance: FAMOTIDINE
     Dosage: UNK
  11. SYMBICORT [Concomitant]
     Active Substance: BUDESONIDE\FORMOTEROL FUMARATE DIHYDRATE
     Dosage: UNK
  12. VENTOLIN HFA [Concomitant]
     Active Substance: ALBUTEROL SULFATE
     Dosage: UNK
  13. AVELOX [Suspect]
     Active Substance: MOXIFLOXACIN HYDROCHLORIDE
     Indication: INFECTION
     Dosage: 400 MG, UNK
     Dates: start: 20070627
  14. AVELOX [Suspect]
     Active Substance: MOXIFLOXACIN HYDROCHLORIDE
     Indication: INFECTION
     Dosage: 400 MG, UNK
     Dates: start: 20080229
  15. LEVAQUIN [Concomitant]
     Active Substance: LEVOFLOXACIN
     Dosage: 750 MG, UNK
     Dates: start: 20110403
  16. METFORMIN [Concomitant]
     Active Substance: METFORMIN HYDROCHLORIDE
     Dosage: UNK
  17. DIOVAN [Concomitant]
     Active Substance: VALSARTAN
     Dosage: UNK
  18. ALBUTEROL. [Concomitant]
     Active Substance: ALBUTEROL
     Route: 045
  19. AVELOX [Suspect]
     Active Substance: MOXIFLOXACIN HYDROCHLORIDE
     Indication: INFECTION
     Dosage: 500 MG, QD
     Route: 048
     Dates: start: 200706
  20. CIPRO [Suspect]
     Active Substance: CIPROFLOXACIN HYDROCHLORIDE
     Dosage: 500 MG, QD
     Route: 048
     Dates: start: 200907
  21. SINGULAIR [Concomitant]
     Active Substance: MONTELUKAST SODIUM
     Dosage: UNK
  22. TOPROL XL [Concomitant]
     Active Substance: METOPROLOL SUCCINATE
     Dosage: UNK
  23. LYRICA [Concomitant]
     Active Substance: PREGABALIN
     Dosage: UNK
  24. LORTAB [Concomitant]
     Active Substance: ACETAMINOPHEN\HYDROCODONE BITARTRATE
  25. NORCO [Concomitant]
     Active Substance: ACETAMINOPHEN\HYDROCODONE BITARTRATE
     Dosage: 10 MG, UNK
  26. CYMBALTA [Concomitant]
     Active Substance: DULOXETINE HYDROCHLORIDE
     Dosage: UNK
  27. CIPRO [Suspect]
     Active Substance: CIPROFLOXACIN HYDROCHLORIDE
     Dosage: 500 MG, QD
     Route: 048
     Dates: start: 201101
  28. CIPRO [Suspect]
     Active Substance: CIPROFLOXACIN HYDROCHLORIDE
     Dosage: 500 MG, QD
     Route: 048
     Dates: start: 201104
  29. CIPRO [Suspect]
     Active Substance: CIPROFLOXACIN HYDROCHLORIDE
     Dosage: 500 MG, UNK
     Dates: start: 20130117
  30. LEVOFLOXACIN. [Suspect]
     Active Substance: LEVOFLOXACIN
     Dosage: 500 MG, UNK
     Dates: start: 20130716
  31. LEVAQUIN [Concomitant]
     Active Substance: LEVOFLOXACIN
     Dosage: 500 MG, UNK
     Dates: start: 20051221
  32. HYDROCODONE [Concomitant]
     Active Substance: HYDROCODONE
     Indication: PAIN
     Dosage: UNK
  33. TRAZODONE [Concomitant]
     Active Substance: TRAZODONE HYDROCHLORIDE
     Dosage: UNK
  34. NEURONTIN [Concomitant]
     Active Substance: GABAPENTIN
     Dosage: 300 MG, UNK
  35. AVELOX [Suspect]
     Active Substance: MOXIFLOXACIN HYDROCHLORIDE
     Indication: INFECTION
     Dosage: 400 MG, UNK
     Dates: start: 20060531
  36. CIPRO [Suspect]
     Active Substance: CIPROFLOXACIN HYDROCHLORIDE
     Dosage: 500 MG, QD
     Route: 048
     Dates: start: 200901
  37. CIPRO [Suspect]
     Active Substance: CIPROFLOXACIN HYDROCHLORIDE
     Dosage: UNK
     Dates: start: 2013
  38. LEVAQUIN [Concomitant]
     Active Substance: LEVOFLOXACIN
     Dosage: UNK
  39. VENTOLIN [Concomitant]
     Active Substance: ALBUTEROL SULFATE
     Dosage: UNK
  40. CYCLOBENZAPRINE HYDROCHLORIDE. [Concomitant]
     Active Substance: CYCLOBENZAPRINE HYDROCHLORIDE
     Dosage: UNK
  41. AVELOX [Suspect]
     Active Substance: MOXIFLOXACIN HYDROCHLORIDE
     Indication: INFECTION
     Dosage: 500 MG, QD
     Route: 048
     Dates: start: 200802
  42. LEVOFLOXACIN. [Suspect]
     Active Substance: LEVOFLOXACIN
     Dosage: 500 MG, UNK
     Dates: start: 20130610
  43. NABUMETONE. [Concomitant]
     Active Substance: NABUMETONE
     Dosage: UNK
  44. FLEXERIL [Concomitant]
     Active Substance: CYCLOBENZAPRINE HYDROCHLORIDE
     Dosage: UNK

REACTIONS (68)
  - Hypoaesthesia [None]
  - Nausea [None]
  - Muscle rigidity [None]
  - Pneumonia [None]
  - Intervertebral disc protrusion [None]
  - Incontinence [None]
  - Hot flush [None]
  - Heart valve incompetence [None]
  - Insomnia [None]
  - Paraesthesia [None]
  - Dizziness [None]
  - Benign breast neoplasm [None]
  - Pain [None]
  - Back pain [None]
  - Spinal osteoarthritis [None]
  - Cervicogenic headache [None]
  - Muscle spasms [None]
  - Nocturia [None]
  - Neuropathy peripheral [None]
  - Pain in extremity [None]
  - Swelling [None]
  - Dyskinesia [None]
  - Musculoskeletal stiffness [None]
  - Chest pain [None]
  - Acute sinusitis [None]
  - Conjunctivitis allergic [None]
  - Rotator cuff syndrome [None]
  - Discomfort [None]
  - Carpal tunnel syndrome [None]
  - Cataract [None]
  - Oropharyngeal pain [None]
  - Secretion discharge [None]
  - Staphylococcal infection [None]
  - Balance disorder [None]
  - Spinal column stenosis [None]
  - Wheezing [None]
  - Dyspnoea [None]
  - Diabetic neuropathy [None]
  - Fibromyalgia [None]
  - Urinary tract infection [None]
  - Neck pain [None]
  - Coordination abnormal [None]
  - Breast neoplasm [None]
  - Uterine leiomyoma [None]
  - Axonal neuropathy [None]
  - Productive cough [None]
  - Hypertension [None]
  - Impulse-control disorder [None]
  - Acute sinusitis [None]
  - Fatigue [None]
  - Headache [None]
  - Migraine [None]
  - Muscular weakness [None]
  - Sleep apnoea syndrome [None]
  - Joint swelling [None]
  - Cataract operation [None]
  - Sciatica [None]
  - Drug hypersensitivity [None]
  - Plantar fasciitis [None]
  - Injury [None]
  - Emotional distress [None]
  - Hyperhidrosis [None]
  - Vision blurred [None]
  - Sinusitis [None]
  - Rhinorrhoea [None]
  - Asthma [None]
  - Arthralgia [None]
  - Dyslexia [None]

NARRATIVE: CASE EVENT DATE: 20141004
